FAERS Safety Report 6349471-4 (Version None)
Quarter: 2009Q3

REPORT INFORMATION
  Report Type: 
  Country: None (occurrence: None)
  Receive Date: 20090911
  Receipt Date: 20090901
  Transmission Date: 20100115
  Serious: Yes (Other)
  Sender: FDA-Public Use
  Company Number: DE-PFIZER INC-2009252178

PATIENT

DRUGS (1)
  1. ZOLOFT [Suspect]
     Indication: DEPRESSION
     Dosage: 100 MG, DAILY
     Route: 048
     Dates: start: 20060101, end: 20060101

REACTIONS (8)
  - ANXIETY [None]
  - DEPRESSION [None]
  - DRUG WITHDRAWAL SYNDROME [None]
  - HYPERTONIA [None]
  - RESTLESSNESS [None]
  - SENSATION OF HEAVINESS [None]
  - WEIGHT DECREASED [None]
  - WEIGHT INCREASED [None]
